FAERS Safety Report 11553345 (Version 1)
Quarter: 2015Q3

REPORT INFORMATION
  Report Type: Spontaneous
  Country: BE (occurrence: BE)
  Receive Date: 20150925
  Receipt Date: 20150925
  Transmission Date: 20151125
  Serious: Yes (Other)
  Sender: FDA-Public Use
  Company Number: BE-TEVA-595767ISR

PATIENT
  Sex: Male

DRUGS (1)
  1. VINCRISIN [Suspect]
     Active Substance: VINCRISTINE SULFATE
     Route: 042

REACTIONS (1)
  - Parkinson^s disease [Unknown]
